FAERS Safety Report 10154539 (Version 2)
Quarter: 2014Q3

REPORT INFORMATION
  Report Type: Spontaneous
  Country: FR (occurrence: None)
  Receive Date: 20140502
  Receipt Date: 20140701
  Transmission Date: 20150326
  Serious: Yes (Death, Hospitalization)
  Sender: FDA-Public Use
  Company Number: 2014MPI00415

PATIENT
  Age: 67 Year
  Sex: Male
  Weight: 60 kg

DRUGS (5)
  1. OXALIPLATIN (OXALIPLATIN) [Concomitant]
     Active Substance: OXALIPLATIN
  2. ADCETRIS [Suspect]
     Active Substance: BRENTUXIMAB VEDOTIN
     Indication: ANGIOIMMUNOBLASTIC T-CELL LYMPHOMA
     Route: 042
     Dates: start: 20131129
  3. ETOPOSIDE TEVA (ETOPOSIDE) [Concomitant]
  4. ARACYTINE (CYTARABINE) [Concomitant]
  5. DEXAMETHASONE (DEXAMETHASONE SODIUM PHOSPHATE) [Concomitant]

REACTIONS (5)
  - Histiocytosis haematophagic [None]
  - Capillary leak syndrome [None]
  - Hypoalbuminaemia [None]
  - Serum ferritin increased [None]
  - Generalised oedema [None]

NARRATIVE: CASE EVENT DATE: 20131202
